FAERS Safety Report 19949452 (Version 1)
Quarter: 2021Q4

REPORT INFORMATION
  Report Type: Spontaneous
  Country: US (occurrence: US)
  Receive Date: 20211013
  Receipt Date: 20211013
  Transmission Date: 20220303
  Serious: No
  Sender: FDA-Public Use
  Company Number: US-GLENMARK PHARMACEUTICALS-2021GMK067376

PATIENT

DRUGS (1)
  1. LIDOCAINE [Suspect]
     Active Substance: LIDOCAINE
     Indication: Product used for unknown indication
     Dosage: UNK
     Route: 061

REACTIONS (7)
  - Application site pain [Unknown]
  - Application site pruritus [Unknown]
  - Product dispensing error [Unknown]
  - Product quality issue [Unknown]
  - Product physical consistency issue [Unknown]
  - Product closure removal difficult [Unknown]
  - Drug ineffective [Unknown]
